FAERS Safety Report 10377692 (Version 2)
Quarter: 2014Q4

REPORT INFORMATION
  Report Type: Spontaneous
  Country: SE (occurrence: SE)
  Receive Date: 20140812
  Receipt Date: 20141230
  Transmission Date: 20150528
  Serious: Yes (Other)
  Sender: FDA-Public Use
  Company Number: SE-TEVA-500497ISR

PATIENT
  Age: 28 Year
  Sex: Female

DRUGS (3)
  1. KAVEPENIN [Suspect]
     Active Substance: PHENOXYMETHYLPENICILLIN CALCIUM
     Dosage: 5 MILLIGRAM DAILY;
     Route: 048
     Dates: start: 20140701, end: 20140701
  2. DOXYFERM 100 MG TABLETT [Suspect]
     Active Substance: DOXYCYCLINE
     Dosage: 900 MILLIGRAM DAILY;
     Route: 048
     Dates: start: 20140701, end: 20140701
  3. MIRTAZAPINE. [Suspect]
     Active Substance: MIRTAZAPINE
     Dosage: 420 MILLIGRAM DAILY;
     Route: 048
     Dates: start: 20140701, end: 20140701

REACTIONS (4)
  - Incorrect dose administered [Unknown]
  - Depression [Unknown]
  - Toxicity to various agents [Unknown]
  - Anxiety [Unknown]

NARRATIVE: CASE EVENT DATE: 20140701
